FAERS Safety Report 5504965-6 (Version None)
Quarter: 2007Q4

REPORT INFORMATION
  Report Type: 
  Country: None (occurrence: None)
  Receive Date: 20071102
  Receipt Date: 20071018
  Transmission Date: 20080405
  Serious: Yes (Hospitalization)
  Sender: FDA-Public Use
  Company Number: JP-ELI_LILLY_AND_COMPANY-JP200709000784

PATIENT
  Sex: Female
  Weight: 58 kg

DRUGS (14)
  1. TADALAFIL [Suspect]
     Indication: PULMONARY HYPERTENSION
     Dosage: 40 MG, DAILY (1/D)
     Route: 048
     Dates: start: 20070703
  2. PREDONINE [Concomitant]
     Indication: COLLAGEN DISORDER
     Dosage: 5 MG, DAILY (1/D)
     Route: 048
     Dates: start: 19980101
  3. ASPARA K [Concomitant]
     Indication: HYPOKALAEMIA
     Dosage: 900 MG, 3/D
     Route: 048
     Dates: start: 20041214
  4. DIART [Concomitant]
     Indication: CARDIAC FAILURE
     Dosage: 60 MG, DAILY (1/D)
     Route: 048
     Dates: start: 20041215
  5. BISOPROLOL FUMARATE [Concomitant]
     Indication: CARDIAC FAILURE
     Dosage: 5 MG, DAILY (1/D)
     Route: 048
     Dates: start: 20041215
  6. DORNER [Concomitant]
     Indication: PULMONARY HYPERTENSION
     Dosage: 160 UG, 4/D
     Route: 048
     Dates: start: 20050124
  7. ARIMIDEX [Concomitant]
     Indication: PROPHYLAXIS
     Dosage: 1 MG, DAILY (1/D)
     Route: 048
     Dates: start: 20050701
  8. MUCOSOLATE [Concomitant]
     Indication: PULMONARY FIBROSIS
     Dosage: 45 MG, 3/D
     Route: 048
     Dates: start: 20060320
  9. ALLOZYM [Concomitant]
     Indication: HYPERURICAEMIA
     Dosage: 100 MG, DAILY (1/D)
     Route: 048
     Dates: start: 20070317
  10. TRACLEER [Concomitant]
     Indication: PULMONARY HYPERTENSION
     Dosage: 125 MG, DAILY (1/D)
     Route: 048
     Dates: start: 20060322
  11. LIVALO [Concomitant]
     Indication: HYPERLIPIDAEMIA
     Dosage: 1 MG, DAILY (1/D)
     Route: 048
     Dates: start: 20060528
  12. SPIRONOLACTONE [Concomitant]
     Indication: CARDIAC FAILURE
     Dosage: 50 MG, DAILY (1/D)
     Route: 048
     Dates: start: 20070317
  13. WARFARIN SODIUM [Concomitant]
     Indication: THROMBOSIS PROPHYLAXIS
     Dosage: 4 MG, DAILY (1/D)
     Route: 048
     Dates: start: 20060427
  14. WARFARIN SODIUM [Concomitant]
     Dosage: 3 MG, DAILY (1/D)
     Route: 048
     Dates: start: 20070629

REACTIONS (1)
  - BREAST CANCER RECURRENT [None]
